FAERS Safety Report 12781386 (Version 1)
Quarter: 2016Q3

REPORT INFORMATION
  Report Type: Spontaneous
  Country: BR (occurrence: BR)
  Receive Date: 20160926
  Receipt Date: 20160926
  Transmission Date: 20161109
  Serious: Yes (Other)
  Sender: FDA-Public Use
  Company Number: BR-PFIZER INC-2016442319

PATIENT
  Age: 78 Year
  Sex: Male
  Weight: 84 kg

DRUGS (1)
  1. XALATAN [Suspect]
     Active Substance: LATANOPROST
     Indication: INTRAOCULAR PRESSURE TEST ABNORMAL
     Dosage: 1 DROP IN EACH EYE, 1X/DAY
     Route: 047
     Dates: end: 201508

REACTIONS (2)
  - Cataract [Unknown]
  - Visual impairment [Unknown]
